FAERS Safety Report 5356508-8 (Version None)
Quarter: 2007Q2

REPORT INFORMATION
  Report Type: 
  Country: None (occurrence: None)
  Receive Date: 20070530
  Receipt Date: 20070110
  Transmission Date: 20071010
  Serious: Yes (Other)
  Sender: FDA-Public Use
  Company Number: US200609003714

PATIENT
  Age: 39 Year
  Sex: Female
  Weight: 59.9 kg

DRUGS (1)
  1. ZYPREXA [Suspect]
     Dates: start: 20050701, end: 20051001

REACTIONS (2)
  - PANCREATITIS [None]
  - WEIGHT DECREASED [None]
